FAERS Safety Report 11102453 (Version 1)
Quarter: 2015Q2

REPORT INFORMATION
  Report Type: Spontaneous
  Country: US (occurrence: None)
  Receive Date: 20150508
  Receipt Date: 20150508
  Transmission Date: 20150821
  Serious: No
  Sender: FDA-Public Use
  Company Number: None

PATIENT
  Age: 47 Year
  Sex: Female

DRUGS (5)
  1. ENBREL [Suspect]
     Active Substance: ETANERCEPT
     Indication: PSORIATIC ARTHROPATHY
     Dosage: 50MG QWK SQ
     Dates: start: 20150215
  2. METHOTREXATE [Concomitant]
     Active Substance: METHOTREXATE
  3. NAPROXEN. [Concomitant]
     Active Substance: NAPROXEN
  4. VITAMIN D [Concomitant]
     Active Substance: CHOLECALCIFEROL
  5. FOLIC ACID. [Concomitant]
     Active Substance: FOLIC ACID

REACTIONS (2)
  - Incorrect dose administered by device [None]
  - Device malfunction [None]

NARRATIVE: CASE EVENT DATE: 20150429
